FAERS Safety Report 23542721 (Version 5)
Quarter: 2024Q1

REPORT INFORMATION
  Report Type: Spontaneous
  Country: US (occurrence: US)
  Receive Date: 20240220
  Receipt Date: 20240321
  Transmission Date: 20240410
  Serious: Yes (Death, Hospitalization)
  Sender: FDA-Public Use
  Company Number: US-BIOGEN-2024BI01249392

PATIENT
  Age: 59 Year
  Sex: Female
  Weight: 56.75 kg

DRUGS (4)
  1. TYSABRI [Suspect]
     Active Substance: NATALIZUMAB
     Indication: Relapsing-remitting multiple sclerosis
     Route: 050
     Dates: start: 20070329, end: 20181001
  2. TYSABRI [Suspect]
     Active Substance: NATALIZUMAB
     Route: 050
     Dates: start: 20190307, end: 20191008
  3. TYSABRI [Suspect]
     Active Substance: NATALIZUMAB
     Route: 050
     Dates: start: 20191213, end: 20220715
  4. TYSABRI [Suspect]
     Active Substance: NATALIZUMAB
     Dosage: EXTENDED INTERVAL DOSING
     Route: 050
     Dates: start: 20220819, end: 20231207

REACTIONS (4)
  - COVID-19 [Fatal]
  - Progressive multifocal leukoencephalopathy [Fatal]
  - Respiratory failure [Fatal]
  - Prescribed underdose [Unknown]

NARRATIVE: CASE EVENT DATE: 20231228
